FAERS Safety Report 23466496 (Version 1)
Quarter: 2024Q1

REPORT INFORMATION
  Report Type: Spontaneous
  Country: US (occurrence: None)
  Receive Date: 20240131
  Receipt Date: 20240131
  Transmission Date: 20240410
  Serious: Yes (Other)
  Sender: FDA-Public Use
  Company Number: None

PATIENT
  Age: 11 Year
  Sex: Female

DRUGS (2)
  1. TORADOL [Suspect]
     Active Substance: KETOROLAC TROMETHAMINE
     Indication: Migraine
     Dates: start: 20240111, end: 20240111
  2. COMPAZINE [Suspect]
     Active Substance: PROCHLORPERAZINE MALEATE
     Dates: start: 20240111, end: 20240111

REACTIONS (13)
  - Agitation [None]
  - Emotional disorder [None]
  - Abnormal behaviour [None]
  - Anger [None]
  - Feeling abnormal [None]
  - Depressed mood [None]
  - Affective disorder [None]
  - Crying [None]
  - Dyskinesia [None]
  - Insomnia [None]
  - Menstruation delayed [None]
  - Product use issue [None]
  - Product communication issue [None]

NARRATIVE: CASE EVENT DATE: 20240111
